FAERS Safety Report 21629633 (Version 5)
Quarter: 2023Q1

REPORT INFORMATION
  Report Type: Spontaneous
  Country: US (occurrence: US)
  Receive Date: 20221122
  Receipt Date: 20230111
  Transmission Date: 20230418
  Serious: Yes (Other)
  Sender: FDA-Public Use
  Company Number: US-Blueprint Medicines Corporation-SP-US-2022-003268

PATIENT
  Age: 70 Year
  Sex: Male

DRUGS (2)
  1. AYVAKIT [Suspect]
     Active Substance: AVAPRITINIB
     Indication: Systemic mastocytosis
     Route: 048
     Dates: start: 20221103
  2. AYVAKIT [Suspect]
     Active Substance: AVAPRITINIB
     Route: 048
     Dates: start: 20221102

REACTIONS (8)
  - Splenic rupture [Unknown]
  - Femur fracture [Unknown]
  - Feeling abnormal [Not Recovered/Not Resolved]
  - Gait disturbance [Recovering/Resolving]
  - Muscle tightness [Not Recovered/Not Resolved]
  - Bone loss [Unknown]
  - Pain [Unknown]
  - Bone fragmentation [Unknown]
